FAERS Safety Report 14555515 (Version 1)
Quarter: 2018Q1

REPORT INFORMATION
  Report Type: Spontaneous
  Country: US (occurrence: US)
  Receive Date: 20180220
  Receipt Date: 20180220
  Transmission Date: 20180509
  Serious: No
  Sender: FDA-Public Use
  Company Number: US-VIFOR (INTERNATIONAL) INC.-VIT-2016-08583

PATIENT
  Age: 69 Year
  Sex: Male

DRUGS (8)
  1. VELTASSA [Suspect]
     Active Substance: PATIROMER
     Route: 048
     Dates: start: 20160823
  2. TAMSULOSIN [Concomitant]
     Active Substance: TAMSULOSIN
  3. METFORMIN [Concomitant]
     Active Substance: METFORMIN HYDROCHLORIDE
  4. BUMETANIDE. [Concomitant]
     Active Substance: BUMETANIDE
  5. GLIPIZIDE. [Concomitant]
     Active Substance: GLIPIZIDE
  6. HYDROCHLOROTHIAZIDE/VALSARTAN [Concomitant]
  7. VELTASSA [Suspect]
     Active Substance: PATIROMER
     Indication: HYPERKALAEMIA
     Route: 048
     Dates: start: 201607
  8. VALSARTAN. [Concomitant]
     Active Substance: VALSARTAN

REACTIONS (4)
  - Diarrhoea [Not Recovered/Not Resolved]
  - Abdominal discomfort [Unknown]
  - Ill-defined disorder [Not Recovered/Not Resolved]
  - Drug dose omission [Not Recovered/Not Resolved]

NARRATIVE: CASE EVENT DATE: 201610
